FAERS Safety Report 13158121 (Version 1)
Quarter: 2017Q1

REPORT INFORMATION
  Report Type: Spontaneous
  Country: US (occurrence: US)
  Receive Date: 20170126
  Receipt Date: 20170126
  Transmission Date: 20170428
  Serious: Yes (Life-Threatening, Hospitalization)
  Sender: FDA-Public Use
  Company Number: None

PATIENT
  Age: 23 Year
  Sex: Female
  Weight: 99.79 kg

DRUGS (2)
  1. TYLENOL [Concomitant]
     Active Substance: ACETAMINOPHEN
  2. NEXPLANON [Suspect]
     Active Substance: ETONOGESTREL
     Dates: start: 20150908

REACTIONS (4)
  - Haemorrhage [None]
  - Pulmonary embolism [None]
  - Ovarian mass [None]
  - Chemotherapy [None]

NARRATIVE: CASE EVENT DATE: 20151030
